FAERS Safety Report 9562223 (Version 2)
Quarter: 2013Q3

REPORT INFORMATION
  Report Type: Report from Study
  Country: AR (occurrence: AR)
  Receive Date: 20130927
  Receipt Date: 20130927
  Transmission Date: 20140515
  Serious: Yes (Hospitalization, Other)
  Sender: FDA-Public Use
  Company Number: PHHY2013AR092336

PATIENT
  Sex: Male

DRUGS (1)
  1. EXFORGE [Suspect]
     Indication: HYPERTENSION
     Dosage: 1 DF, (160 MG VALS/ 5 MG AMLO) DAILY
     Route: 048
     Dates: start: 2013

REACTIONS (3)
  - Inguinal hernia [Recovering/Resolving]
  - Pain [Recovering/Resolving]
  - Abasia [Recovering/Resolving]
